FAERS Safety Report 9394792 (Version 1)
Quarter: 2013Q3

REPORT INFORMATION
  Report Type: Spontaneous
  Country: US (occurrence: US)
  Receive Date: 20130711
  Receipt Date: 20130711
  Transmission Date: 20140515
  Serious: No
  Sender: FDA-Public Use
  Company Number: US-BAYER-2013-080655

PATIENT
  Age: 57 Year
  Sex: Female
  Weight: 54 kg

DRUGS (5)
  1. CLIMARA [Suspect]
     Indication: HOT FLUSH
     Dosage: 0.025 MG/24HR, OW
     Route: 062
     Dates: start: 2007
  2. LIALDA [Concomitant]
     Indication: COLITIS ULCERATIVE
     Dosage: 1.2 G, QID
     Dates: start: 2007
  3. LEVOTHYROXIN [Concomitant]
     Indication: HYPOTHYROIDISM
     Dosage: 112 MCG/24HR, QD
     Dates: start: 1993
  4. IMITREX [Concomitant]
     Indication: HEADACHE
     Dosage: 100 MG, PRN
     Dates: start: 2001
  5. AMBIEN [Concomitant]
     Indication: INSOMNIA
     Dosage: 5 MG, PRN
     Dates: start: 2001

REACTIONS (2)
  - Rash [Not Recovered/Not Resolved]
  - Rash [Not Recovered/Not Resolved]
